FAERS Safety Report 9339815 (Version 1)
Quarter: 2013Q2

REPORT INFORMATION
  Report Type: Spontaneous
  Country: IT (occurrence: None)
  Receive Date: 20130605
  Receipt Date: 20130605
  Transmission Date: 20140414
  Serious: Yes (Hospitalization)
  Sender: FDA-Public Use
  Company Number: FK201301864

PATIENT
  Age: 67 Year
  Sex: Male

DRUGS (3)
  1. OXALIPLATIN [Suspect]
     Indication: SMALL INTESTINE ADENOCARCINOMA
     Dosage: 260 MG, CYCLICAL, INTRAVENOUS (NOT OTHERWISE SPECIFIED)
     Route: 042
     Dates: start: 20120808, end: 20120808
  2. XELODA (CAPECITABINE) (CAPECITABINE) [Suspect]
     Indication: SMALL INTESTINE ADENOCARCINOMA
     Dosage: 4000 MG, CYCLICAL, ORAL
     Route: 048
     Dates: start: 20120808, end: 20120809
  3. OMNIC (TAMSULOSIN HYDROCHLORIDE) [Concomitant]

REACTIONS (14)
  - Intestinal infarction [None]
  - Portal vein thrombosis [None]
  - Splenic vein thrombosis [None]
  - Mesenteric vein thrombosis [None]
  - Venous insufficiency [None]
  - Varices oesophageal [None]
  - Gastric varices [None]
  - Effusion [None]
  - Hepatic fibrosis [None]
  - Hepatic steatosis [None]
  - Benign prostatic hyperplasia [None]
  - Bronchiectasis [None]
  - Pleural effusion [None]
  - Lymph node calcification [None]
